FAERS Safety Report 7075796-3 (Version None)
Quarter: 2010Q4

REPORT INFORMATION
  Report Type: 
  Country: None (occurrence: None)
  Receive Date: 20101101
  Receipt Date: 20101021
  Transmission Date: 20110411
  Serious: Yes (Hospitalization)
  Sender: FDA-Public Use
  Company Number: 172042

PATIENT
  Age: 31 Year
  Sex: Female
  Weight: 56 kg

DRUGS (10)
  1. AVONEX [Suspect]
     Indication: MULTIPLE SCLEROSIS
     Route: 030
     Dates: start: 19960101
  2. TYSABRI [Concomitant]
     Indication: MULTIPLE SCLEROSIS
  3. INTRAVENOUS IMMUNOGLOBIN [Concomitant]
     Indication: MULTIPLE SCLEROSIS
     Dates: start: 20001001
  4. PROVIGIL [Concomitant]
     Indication: FATIGUE
     Dates: start: 20000301
  5. CARAFATE [Concomitant]
     Indication: PROPHYLAXIS AGAINST GASTROINTESTINAL ULCER
     Dates: start: 19960101
  6. KEFLEX [Concomitant]
     Indication: INFECTION PROPHYLAXIS
     Dates: start: 20000207
  7. VOLTAREN [Concomitant]
     Indication: HEADACHE
     Dates: start: 19960730
  8. AMITRIPTYLINE HCL [Concomitant]
     Indication: DEPRESSION
     Route: 048
     Dates: start: 19960827
  9. AXID [Concomitant]
     Indication: REFLUX OESOPHAGITIS
     Dates: start: 19960601
  10. MACRODANTIN [Concomitant]
     Indication: ANTI-INFECTIVE THERAPY
     Dates: start: 19960722, end: 19960701

REACTIONS (10)
  - BALANCE DISORDER [None]
  - CRYING [None]
  - DEPRESSION [None]
  - FOOT FRACTURE [None]
  - HYPOTHYROIDISM [None]
  - INJECTION SITE ERYTHEMA [None]
  - INJURY [None]
  - INTERVERTEBRAL DISC PROTRUSION [None]
  - MULTIPLE SCLEROSIS RELAPSE [None]
  - VEIN DISORDER [None]
